FAERS Safety Report 17157992 (Version 1)
Quarter: 2019Q4

REPORT INFORMATION
  Report Type: Spontaneous
  Country: DE (occurrence: DE)
  Receive Date: 20191216
  Receipt Date: 20191216
  Transmission Date: 20200122
  Serious: Yes (Other)
  Sender: FDA-Public Use
  Company Number: DE-TEVA-780080GER

PATIENT
  Age: 39 Year
  Sex: Female
  Weight: 104 kg

DRUGS (4)
  1. VALSARTAN. [Suspect]
     Active Substance: VALSARTAN
     Indication: HYPERTENSION
     Dosage: 160 MILLIGRAM DAILY; 1-0-0
     Route: 048
     Dates: start: 20160827, end: 20170206
  2. NALPAIN [Concomitant]
     Indication: LABOUR PAIN
     Route: 042
     Dates: start: 20170507, end: 20170507
  3. METHYLDOPA. [Concomitant]
     Active Substance: METHYLDOPA
     Indication: HYPERTENSION
     Dosage: 750 MILLIGRAM DAILY;
     Route: 048
     Dates: start: 20170207, end: 20170507
  4. MEPTID [Concomitant]
     Active Substance: MEPTAZINOL HYDROCHLORIDE
     Indication: LABOUR PAIN
     Route: 042
     Dates: start: 20170507, end: 20170507

REACTIONS (2)
  - Oligohydramnios [Recovered/Resolved]
  - Maternal exposure during pregnancy [Unknown]
